FAERS Safety Report 6716920-9 (Version None)
Quarter: 2010Q2

REPORT INFORMATION
  Report Type: 
  Country: None (occurrence: None)
  Receive Date: 20100505
  Receipt Date: 20100426
  Transmission Date: 20101027
  Serious: Yes (Life-Threatening)
  Sender: FDA-Public Use
  Company Number: TPA2010A02265

PATIENT
  Age: 64 Year
  Sex: Male
  Weight: 89.8122 kg

DRUGS (5)
  1. KAPIDEX (DEXLANSOPRAZOLE) [Suspect]
     Indication: REFLUX LARYNGITIS
     Dosage: 60 MG, 1 IN 1D, PER ORAL
     Route: 048
     Dates: start: 20100330, end: 20100415
  2. PRAVASTATIN [Suspect]
     Indication: LIPIDS INCREASED
     Dosage: 80 MG, 1 IN 1 D, PER ORAL
     Route: 048
  3. ANDROGEL [Concomitant]
  4. CALCIUM (CALCIUM) [Concomitant]
  5. ASPIRIN [Concomitant]

REACTIONS (15)
  - ABDOMINAL PAIN [None]
  - ALANINE AMINOTRANSFERASE INCREASED [None]
  - BLOOD AMYLASE INCREASED [None]
  - BLOOD BILIRUBIN INCREASED [None]
  - BLOOD PHOSPHORUS INCREASED [None]
  - CHROMATURIA [None]
  - DRY EYE [None]
  - DRY MOUTH [None]
  - EYE IRRITATION [None]
  - FATIGUE [None]
  - HEPATIC ENZYME INCREASED [None]
  - JAUNDICE [None]
  - LIPASE INCREASED [None]
  - NAUSEA [None]
  - VOMITING [None]
